FAERS Safety Report 21708731 (Version 3)
Quarter: 2022Q4

REPORT INFORMATION
  Report Type: Report from Study
  Country: US (occurrence: US)
  Receive Date: 20221210
  Receipt Date: 20221213
  Transmission Date: 20230113
  Serious: Yes (Other)
  Sender: FDA-Public Use
  Company Number: US-ABBVIE-4226823

PATIENT
  Sex: Male
  Weight: 117.93 kg

DRUGS (5)
  1. HUMIRA [Suspect]
     Active Substance: ADALIMUMAB
     Indication: Colitis ulcerative
     Route: 058
     Dates: start: 201910
  2. HUMIRA [Suspect]
     Active Substance: ADALIMUMAB
     Dosage: 2ND REGIMEN
     Route: 058
     Dates: start: 2014, end: 201910
  3. NAPROXEN [Concomitant]
     Active Substance: NAPROXEN
     Indication: Pain
  4. REPATHA [Concomitant]
     Active Substance: EVOLOCUMAB
     Indication: Product used for unknown indication
  5. LISINOPRIL [Concomitant]
     Active Substance: LISINOPRIL
     Indication: Blood pressure measurement

REACTIONS (8)
  - Eye laser surgery [Unknown]
  - Device placement issue [Recovering/Resolving]
  - Arthritis [Unknown]
  - Glaucoma [Recovered/Resolved]
  - Surgery [Unknown]
  - Colitis ulcerative [Recovered/Resolved]
  - Colitis ulcerative [Not Recovered/Not Resolved]
  - Medical device removal [Unknown]

NARRATIVE: CASE EVENT DATE: 20140101
